FAERS Safety Report 14460693 (Version 1)
Quarter: 2018Q1

REPORT INFORMATION
  Report Type: Spontaneous
  Country: US (occurrence: US)
  Receive Date: 20180130
  Receipt Date: 20180130
  Transmission Date: 20180509
  Serious: Yes (Other)
  Sender: FDA-Public Use
  Company Number: None

PATIENT
  Age: 63 Year
  Sex: Female
  Weight: 57.15 kg

DRUGS (4)
  1. LISINOPRIL. [Concomitant]
     Active Substance: LISINOPRIL
  2. KEPPRA [Concomitant]
     Active Substance: LEVETIRACETAM
  3. MAG-200 [Concomitant]
  4. CAPECITABINE. [Suspect]
     Active Substance: CAPECITABINE
     Indication: NASAL CAVITY CANCER
     Route: 048
     Dates: start: 20170922, end: 20180130

REACTIONS (1)
  - Disease progression [None]
